FAERS Safety Report 19496406 (Version 1)
Quarter: 2021Q3

REPORT INFORMATION
  Report Type: Spontaneous
  Country: US (occurrence: US)
  Receive Date: 20210706
  Receipt Date: 20210706
  Transmission Date: 20211014
  Serious: Yes (Hospitalization, Other)
  Sender: FDA-Public Use
  Company Number: US-TORRENT-00011164

PATIENT
  Age: 39 Year
  Sex: Male

DRUGS (4)
  1. VALACICLOVIR [Concomitant]
     Active Substance: VALACYCLOVIR HYDROCHLORIDE
     Indication: VITRITIS
     Dosage: UNKNOWN
     Route: 048
  2. FOSCARNET [Concomitant]
     Active Substance: FOSCARNET
     Indication: PAPILLOEDEMA
     Dosage: 2.4MG IN 0.1 ML
  3. ACICLOVIR [Suspect]
     Active Substance: ACYCLOVIR
     Indication: VARICELLA ZOSTER VIRUS INFECTION
     Dosage: HIGH DOSE
     Route: 042
  4. ATROPINE. [Concomitant]
     Active Substance: ATROPINE
     Indication: PAPILLOEDEMA
     Dosage: UNKNOWN

REACTIONS (1)
  - Acute kidney injury [Unknown]
